FAERS Safety Report 19733465 (Version 1)
Quarter: 2021Q3

REPORT INFORMATION
  Report Type: Spontaneous
  Country: US (occurrence: US)
  Receive Date: 20210823
  Receipt Date: 20210823
  Transmission Date: 20211014
  Serious: Yes (Hospitalization, Other)
  Sender: FDA-Public Use
  Company Number: US-SA-2021SA270056

PATIENT
  Age: 52 Year
  Sex: Male

DRUGS (3)
  1. LANTUS SOLOSTAR [Suspect]
     Active Substance: INSULIN GLARGINE
     Indication: TYPE 2 DIABETES MELLITUS
     Dosage: 36 IU, QD
     Route: 065
  2. HUMALOG [Concomitant]
     Active Substance: INSULIN LISPRO
     Dosage: UNK
     Route: 065
     Dates: start: 202004
  3. ONE TOUCH [Concomitant]
     Active Substance: DEXTROSE
     Dosage: 33 G
     Route: 065

REACTIONS (5)
  - Hyperhidrosis [Unknown]
  - Cerebrovascular accident [Unknown]
  - Stress [Unknown]
  - Myocardial infarction [Unknown]
  - Injection site pain [Unknown]

NARRATIVE: CASE EVENT DATE: 202107
